FAERS Safety Report 18595686 (Version 4)
Quarter: 2021Q1

REPORT INFORMATION
  Report Type: Spontaneous
  Country: US (occurrence: US)
  Receive Date: 20201209
  Receipt Date: 20210222
  Transmission Date: 20210419
  Serious: Yes (Other)
  Sender: FDA-Public Use
  Company Number: US-PFIZER INC-2020478257

PATIENT
  Age: 54 Year
  Sex: Male

DRUGS (2)
  1. BENEFIX [Suspect]
     Active Substance: COAGULATION FACTOR IX RECOMBINANT HUMAN\ISOPROPYL ALCOHOL
     Indication: HAEMORRHAGE
  2. BENEFIX [Suspect]
     Active Substance: COAGULATION FACTOR IX RECOMBINANT HUMAN\ISOPROPYL ALCOHOL
     Indication: FACTOR IX DEFICIENCY
     Dosage: INFUSE ?3000 UNITS (2700 TO 3300) EVERY SATURDAY AND TUESDAY; THEN 5000 UNITS (4500 TO 5500) DAILY
     Route: 042
     Dates: start: 201803

REACTIONS (2)
  - Haemarthrosis [Unknown]
  - Haemorrhage [Unknown]
